FAERS Safety Report 11469555 (Version 2)
Quarter: 2015Q3

REPORT INFORMATION
  Report Type: Spontaneous
  Country: US (occurrence: US)
  Receive Date: 20150908
  Receipt Date: 20150910
  Transmission Date: 20151125
  Serious: No
  Sender: FDA-Public Use
  Company Number: US-GLAXOSMITHKLINE-US2015126785

PATIENT
  Age: 72 Year

DRUGS (1)
  1. ABREVA [Suspect]
     Active Substance: DOCOSANOL
     Indication: ORAL HERPES
     Dosage: UNK
     Dates: start: 20150829, end: 20150903

REACTIONS (2)
  - Application site haemorrhage [Recovered/Resolved]
  - Application site scab [Recovered/Resolved]

NARRATIVE: CASE EVENT DATE: 20150902
